FAERS Safety Report 4817393-3 (Version None)
Quarter: 2005Q4

REPORT INFORMATION
  Report Type: 
  Country: None (occurrence: None)
  Receive Date: 20051031
  Receipt Date: 20051019
  Transmission Date: 20060501
  Serious: Yes (Other)
  Sender: FDA-Public Use
  Company Number: 2005146496

PATIENT
  Age: 25 Year
  Sex: Male

DRUGS (4)
  1. METHYLPREDNISOLONE SODIUM SUCCINATE [Suspect]
     Indication: SPINAL CORD INJURY
     Dosage: 9300 MG (1 D), INTRAVENOUS
     Route: 042
  2. HALOPERIDOL [Suspect]
     Indication: AGGRESSION
  3. LEVOMEPROMAZINE (LEVOMEPROMAZINE) [Suspect]
     Indication: AGGRESSION
  4. CHLORPROMAZINE [Suspect]
     Indication: AGGRESSION

REACTIONS (7)
  - ABNORMAL BEHAVIOUR [None]
  - AGGRESSION [None]
  - DRUG INEFFECTIVE [None]
  - FALL [None]
  - HYPOAESTHESIA [None]
  - INSOMNIA [None]
  - IRRITABILITY [None]
